FAERS Safety Report 6631314-2 (Version None)
Quarter: 2010Q1

REPORT INFORMATION
  Report Type: 
  Country: None (occurrence: None)
  Receive Date: 20100312
  Receipt Date: 20100309
  Transmission Date: 20100710
  Serious: Yes (Other)
  Sender: FDA-Public Use
  Company Number: US-ASTRAZENECA-2009SE28236

PATIENT
  Age: 45 Year
  Sex: Female
  Weight: 80.7 kg

DRUGS (9)
  1. SEROQUEL [Suspect]
     Indication: BIPOLAR DISORDER
     Route: 048
     Dates: start: 20050301
  2. SEROQUEL [Suspect]
     Indication: DEPRESSION
     Route: 048
     Dates: start: 20050301
  3. SEROQUEL [Suspect]
     Route: 048
     Dates: start: 20061201
  4. SEROQUEL [Suspect]
     Route: 048
     Dates: start: 20061201
  5. ABILIFY [Concomitant]
     Dates: start: 20070101
  6. GEODON [Concomitant]
     Dates: start: 20040101
  7. HALDOL [Concomitant]
  8. RISPERDAL [Concomitant]
     Dates: start: 20040101, end: 20050101
  9. ZYPREXA [Concomitant]
     Dates: start: 20040101

REACTIONS (5)
  - EXTRAPYRAMIDAL DISORDER [None]
  - GALLBLADDER DISORDER [None]
  - OBESITY [None]
  - TYPE 2 DIABETES MELLITUS [None]
  - WEIGHT INCREASED [None]
